FAERS Safety Report 6062838-7 (Version None)
Quarter: 2009Q1

REPORT INFORMATION
  Report Type: 
  Country: None (occurrence: None)
  Receive Date: 20090121
  Receipt Date: 20090116
  Transmission Date: 20090719
  Serious: Yes (Life-Threatening, Hospitalization)
  Sender: FDA-Public Use
  Company Number: 2009000187

PATIENT
  Age: 75 Year
  Sex: Male

DRUGS (11)
  1. ERLOTINIB (ERLOTINIB) (TABLET) (ERLOTINIB) [Suspect]
     Indication: LUNG ADENOCARCINOMA
     Dosage: 150 MG, QD, ORAL, 100 MG
     Route: 048
     Dates: start: 20080606, end: 20080815
  2. ERLOTINIB (ERLOTINIB) (TABLET) (ERLOTINIB) [Suspect]
     Indication: LUNG ADENOCARCINOMA
     Dosage: 150 MG, QD, ORAL, 100 MG
     Route: 048
     Dates: start: 20080809
  3. SUCRALFATE [Concomitant]
  4. ETODOLAC [Concomitant]
  5. MUCOSTA (REBAMIPIDE) [Concomitant]
  6. DAI-KENCHU-TO [Concomitant]
  7. LASIX [Concomitant]
  8. OXYCONTIN [Concomitant]
  9. JUZENTA IHOTO [Concomitant]
  10. AMITRIPTYLINE HYDROCHLORIDE [Concomitant]
  11. WARFARIN SODIUM [Concomitant]

REACTIONS (10)
  - EMPHYSEMA [None]
  - FOLLICULITIS [None]
  - OBSTRUCTIVE AIRWAYS DISORDER [None]
  - PARALYSIS [None]
  - PERIPROCTITIS [None]
  - PNEUMONIA [None]
  - PYELONEPHRITIS [None]
  - RESPIRATORY FAILURE [None]
  - SKIN ULCER [None]
  - URINARY TRACT INFECTION [None]
